FAERS Safety Report 17796156 (Version 1)
Quarter: 2020Q2

REPORT INFORMATION
  Report Type: Spontaneous
  Country: RS (occurrence: RS)
  Receive Date: 20200517
  Receipt Date: 20200517
  Transmission Date: 20200714
  Serious: Yes (Other)
  Sender: FDA-Public Use
  Company Number: NVSC2020RS132451

PATIENT
  Sex: Female

DRUGS (2)
  1. ENTRESTO [Suspect]
     Active Substance: SACUBITRIL\VALSARTAN
     Indication: CARDIAC FAILURE CHRONIC
     Dosage: UNK, BID
     Route: 065
     Dates: start: 201907, end: 202005
  2. ACETYLSALICYLIC ACID [Concomitant]
     Active Substance: ASPIRIN
     Indication: PRODUCT USED FOR UNKNOWN INDICATION
     Dosage: UNK
     Route: 065

REACTIONS (9)
  - Bundle branch block left [Unknown]
  - Sinus bradycardia [Unknown]
  - Cardiac sarcoidosis [Unknown]
  - Supraventricular extrasystoles [Unknown]
  - Ventricular tachycardia [Unknown]
  - Ventricular extrasystoles [Unknown]
  - Hypokinesia [Unknown]
  - Liver sarcoidosis [Unknown]
  - Pulmonary sarcoidosis [Recovering/Resolving]

NARRATIVE: CASE EVENT DATE: 201908
